FAERS Safety Report 9940498 (Version 2)
Quarter: 2014Q1

REPORT INFORMATION
  Report Type: Spontaneous
  Country: US (occurrence: US)
  Receive Date: 20140303
  Receipt Date: 20140303
  Transmission Date: 20141002
  Serious: Yes (Other)
  Sender: FDA-Public Use
  Company Number: US-PFIZER INC-2014015004

PATIENT
  Age: 47 Year
  Sex: Female
  Weight: 83.9 kg

DRUGS (6)
  1. NEURONTIN [Suspect]
     Indication: NEUROPATHY PERIPHERAL
     Dosage: 800 MG, 3X/DAY
  2. MOTRIN [Suspect]
     Indication: PAIN IN EXTREMITY
     Dosage: 600 MG, 2X/DAY
  3. GLIPIZIDE [Concomitant]
     Indication: DIABETES MELLITUS
     Dosage: UNK, 2X/DAY
  4. WELLBUTRIN [Concomitant]
     Indication: DEPRESSION
     Dosage: 300 MG, DAILY
  5. LISINOPRIL [Concomitant]
     Indication: HYPERTENSION
     Dosage: 25 MG, UNK
  6. VITAMIN B12 [Concomitant]
     Indication: POSTOPERATIVE CARE
     Dosage: UNK, MONTHLY

REACTIONS (4)
  - Infection [Unknown]
  - Ear pain [Unknown]
  - Ear swelling [Unknown]
  - Swelling face [Unknown]
